FAERS Safety Report 24858526 (Version 1)
Quarter: 2025Q1

REPORT INFORMATION
  Report Type: Report from Study
  Country: US (occurrence: US)
  Receive Date: 20250117
  Receipt Date: 20250117
  Transmission Date: 20250408
  Serious: No
  Sender: ACCORD
  Company Number: US-Accord-446300

PATIENT
  Sex: Male

DRUGS (2)
  1. CLOZAPINE [Suspect]
     Active Substance: CLOZAPINE
     Indication: Product used for unknown indication
  2. CLONIDINE [Suspect]
     Active Substance: CLONIDINE
     Indication: Product used for unknown indication

REACTIONS (15)
  - Therapy interrupted [Unknown]
  - Product availability issue [Unknown]
  - Mania [Unknown]
  - Conjunctivitis [Unknown]
  - Withdrawal syndrome [Unknown]
  - Anterior chamber flare [Unknown]
  - Hyperhidrosis [Unknown]
  - Insomnia [Unknown]
  - Logorrhoea [Unknown]
  - Abdominal discomfort [Unknown]
  - Feeding disorder [Unknown]
  - Irritability [Unknown]
  - Aggression [Unknown]
  - Abnormal behaviour [Unknown]
  - Depressed mood [Unknown]
